FAERS Safety Report 19425217 (Version 1)
Quarter: 2021Q2

REPORT INFORMATION
  Report Type: Spontaneous
  Country: US (occurrence: US)
  Receive Date: 20210617
  Receipt Date: 20210617
  Transmission Date: 20210717
  Serious: No
  Sender: FDA-Public Use
  Company Number: US-ROCHE-2797161

PATIENT
  Sex: Female

DRUGS (5)
  1. ACTEMRA [Suspect]
     Active Substance: TOCILIZUMAB
     Indication: RHEUMATOID ARTHRITIS
     Route: 065
  2. NAPROXEN. [Concomitant]
     Active Substance: NAPROXEN
  3. ENBREL [Concomitant]
     Active Substance: ETANERCEPT
     Dosage: 50 MG/ML
  4. PREDNISONE. [Concomitant]
     Active Substance: PREDNISONE
  5. FLUVIRIN NOS [Concomitant]
     Active Substance: INFLUENZA VIRUS VACCINE

REACTIONS (2)
  - Circumstance or information capable of leading to medication error [Unknown]
  - No adverse event [Unknown]
